FAERS Safety Report 21783771 (Version 2)
Quarter: 2023Q1

REPORT INFORMATION
  Report Type: Spontaneous
  Country: US (occurrence: US)
  Receive Date: 20221227
  Receipt Date: 20230210
  Transmission Date: 20230418
  Serious: No
  Sender: FDA-Public Use
  Company Number: US-BELCHER PHARMACEUTICALS, LLC-2022US005326

PATIENT

DRUGS (1)
  1. ABLYSINOL DEHYDRATED ALCOHOL [Suspect]
     Active Substance: ALCOHOL
     Indication: Hypertrophic cardiomyopathy
     Dosage: 2 ML

REACTIONS (2)
  - Drug ineffective [Unknown]
  - Product complaint [Unknown]

NARRATIVE: CASE EVENT DATE: 20220808
